FAERS Safety Report 24768611 (Version 1)
Quarter: 2024Q4

REPORT INFORMATION
  Report Type: Report from Study
  Country: CA (occurrence: CA)
  Receive Date: 20241224
  Receipt Date: 20241224
  Transmission Date: 20250114
  Serious: Yes (Other)
  Sender: REGENERON
  Company Number: CA-BAYER-2024A180365

PATIENT
  Sex: Female

DRUGS (1)
  1. EYLEA [Suspect]
     Active Substance: AFLIBERCEPT
     Indication: Age-related macular degeneration
     Dosage: 2 MG, 40 MG/ML, SOLUTION FOR INJECTION
     Dates: start: 20241111

REACTIONS (1)
  - Cataract operation [Unknown]
